FAERS Safety Report 5032994-8 (Version None)
Quarter: 2006Q2

REPORT INFORMATION
  Report Type: 
  Country: None (occurrence: None)
  Receive Date: 20060515
  Receipt Date: 20060308
  Transmission Date: 20061013
  Serious: No
  Sender: FDA-Public Use
  Company Number: S06-USA-01059-01

PATIENT
  Age: 79 Year
  Sex: Male

DRUGS (4)
  1. NAMENDA [Suspect]
     Indication: PARKINSON'S DISEASE
     Dosage: 10 MG  BID  PO
     Route: 048
     Dates: start: 20060113
  2. LUNESTA [Concomitant]
  3. BACLOFEN [Concomitant]
  4. CARBIDOPA AND LEVODOPA [Concomitant]

REACTIONS (1)
  - APHONIA [None]
